FAERS Safety Report 6502772-9 (Version None)
Quarter: 2009Q4

REPORT INFORMATION
  Report Type: 
  Country: None (occurrence: None)
  Receive Date: 20091217
  Receipt Date: 20091209
  Transmission Date: 20100525
  Serious: Yes (Other)
  Sender: FDA-Public Use
  Company Number: BR-SANOFI-AVENTIS-2009SA008253

PATIENT
  Age: 64 Year
  Sex: Female
  Weight: 83 kg

DRUGS (9)
  1. LANTUS [Suspect]
     Indication: TYPE 2 DIABETES MELLITUS
     Route: 058
  2. OPTIPEN [Suspect]
     Route: 058
  3. GLUCOVANCE [Suspect]
     Indication: TYPE 2 DIABETES MELLITUS
     Dosage: 6 TABS DAILY
  4. HUMALOG [Concomitant]
     Indication: TYPE 2 DIABETES MELLITUS
     Dosage: 15 IU WITH LUNCH AND 15 IU AT DINNER
  5. LOSARTAN [Concomitant]
     Dosage: 2 TABS DAILY
     Route: 048
  6. ATENOLOL [Concomitant]
     Indication: ARRHYTHMIA
     Dosage: 6 TABS DAILY
     Route: 048
  7. DIGOXIN [Concomitant]
     Route: 048
  8. OMEPRAZOLE [Concomitant]
     Indication: GASTRIC DISORDER
     Route: 048
  9. BETAHISTINE HYDROCHLORIDE [Concomitant]
     Indication: LABYRINTHITIS
     Dosage: 2 TABS DAILY
     Route: 048

REACTIONS (10)
  - DIZZINESS [None]
  - HYPERGLYCAEMIA [None]
  - HYPERHIDROSIS [None]
  - HYPOGLYCAEMIA [None]
  - INJECTION SITE HAEMORRHAGE [None]
  - INJECTION SITE INJURY [None]
  - INJECTION SITE PAIN [None]
  - POLLAKIURIA [None]
  - SKIN DISORDER [None]
  - WEIGHT DECREASED [None]
